FAERS Safety Report 19228035 (Version 2)
Quarter: 2021Q2

REPORT INFORMATION
  Report Type: Spontaneous
  Country: US (occurrence: US)
  Receive Date: 20210507
  Receipt Date: 20210531
  Transmission Date: 20210717
  Serious: Yes (Other)
  Sender: FDA-Public Use
  Company Number: US-BEH-2021131496

PATIENT
  Age: 65 Year
  Sex: Female

DRUGS (1)
  1. PRIVIGEN [Suspect]
     Active Substance: HUMAN IMMUNOGLOBULIN G
     Indication: POLYMYOSITIS
     Dosage: 40 GRAM QD FOR 3 DAYS, EVERY 4 WEEKS
     Route: 042
     Dates: start: 202002

REACTIONS (8)
  - Cardiac failure [Unknown]
  - No adverse event [Unknown]
  - Underdose [Unknown]
  - Headache [Unknown]
  - Swelling [Unknown]
  - Cardiac failure congestive [Unknown]
  - Incorrect drug administration rate [Unknown]
  - Off label use [Unknown]

NARRATIVE: CASE EVENT DATE: 20210427
